FAERS Safety Report 6912331-1 (Version None)
Quarter: 2010Q3

REPORT INFORMATION
  Report Type: 
  Country: None (occurrence: None)
  Receive Date: 20100806
  Receipt Date: 20080306
  Transmission Date: 20110219
  Serious: No
  Sender: FDA-Public Use
  Company Number: US-PFIZER INC-2008019671

PATIENT
  Sex: Male

DRUGS (3)
  1. GLUCOTROL [Suspect]
     Indication: BLOOD GLUCOSE INCREASED
  2. LISINOPRIL [Concomitant]
  3. ALL OTHER THERAPEUTIC PRODUCTS [Concomitant]

REACTIONS (1)
  - BLOOD GLUCOSE INCREASED [None]
